FAERS Safety Report 7159243-9 (Version None)
Quarter: 2010Q4

REPORT INFORMATION
  Report Type: 
  Country: None (occurrence: None)
  Receive Date: 20101214
  Receipt Date: 20100806
  Transmission Date: 20110411
  Serious: No
  Sender: FDA-Public Use
  Company Number: US-ASTRAZENECA-2010SE37015

PATIENT
  Age: 70 Year
  Sex: Female
  Weight: 59.9 kg

DRUGS (1)
  1. CRESTOR [Suspect]
     Route: 048

REACTIONS (6)
  - DYSPHAGIA [None]
  - HEADACHE [None]
  - LYMPHADENOPATHY [None]
  - MYALGIA [None]
  - NECK MASS [None]
  - OROPHARYNGEAL PAIN [None]
